FAERS Safety Report 5566840-0 (Version None)
Quarter: 2007Q4

REPORT INFORMATION
  Report Type: 
  Country: None (occurrence: None)
  Receive Date: 20071219
  Receipt Date: 20071214
  Transmission Date: 20080405
  Serious: Yes (Disabling, Other)
  Sender: FDA-Public Use
  Company Number: US-GILEAD-2007-0014388

PATIENT
  Sex: Female
  Weight: 58.112 kg

DRUGS (4)
  1. LETAIRIS [Suspect]
     Indication: PULMONARY HYPERTENSION
     Route: 048
     Dates: start: 20070801, end: 20071024
  2. LASIX [Concomitant]
     Route: 048
  3. COUMADIN [Concomitant]
     Route: 048
  4. INSULIN [Concomitant]
     Route: 065

REACTIONS (4)
  - DIARRHOEA [None]
  - NASAL CONGESTION [None]
  - RASH [None]
  - THROAT TIGHTNESS [None]
